FAERS Safety Report 6460812-X (Version None)
Quarter: 2009Q4

REPORT INFORMATION
  Report Type: 
  Country: None (occurrence: None)
  Receive Date: 20091130
  Receipt Date: 20091125
  Transmission Date: 20100525
  Serious: Yes (Hospitalization)
  Sender: FDA-Public Use
  Company Number: US-PFIZER INC-2009167591

PATIENT
  Sex: Male
  Weight: 81.6 kg

DRUGS (9)
  1. SUNITINIB MALATE [Suspect]
     Indication: CENTRAL NERVOUS SYSTEM NEOPLASM
     Dosage: 50 MG, 1X/DAY
     Dates: start: 20081125, end: 20090130
  2. LISINOPRIL [Suspect]
     Dosage: UNK
     Dates: start: 20090120, end: 20090130
  3. ACETAMINOPHEN [Concomitant]
     Dosage: UNK
     Dates: start: 20070914
  4. AMITRIPTYLINE [Concomitant]
     Dosage: UNK
     Dates: start: 20070914, end: 20081222
  5. GABAPENTIN [Concomitant]
     Dosage: UNK
     Dates: start: 20080527
  6. IBUPROFEN [Concomitant]
     Dosage: UNK
     Dates: start: 20080527, end: 20090209
  7. LACTULOSE [Concomitant]
     Dosage: UNK
     Dates: start: 20080529, end: 20090413
  8. OXYCODONE [Concomitant]
     Dosage: UNK
     Dates: start: 20070914, end: 20090515
  9. TIZANIDINE HYDROCHLORIDE [Concomitant]
     Dosage: UNK
     Dates: start: 20070914, end: 20090130

REACTIONS (2)
  - ABDOMINAL PAIN [None]
  - HYPOTENSION [None]
